FAERS Safety Report 7067688-0 (Version None)
Quarter: 2010Q4

REPORT INFORMATION
  Report Type: 
  Country: None (occurrence: None)
  Receive Date: 20101028
  Receipt Date: 20101014
  Transmission Date: 20110411
  Serious: Yes (Death, Hospitalization)
  Sender: FDA-Public Use
  Company Number: PHFR2010GB04668

PATIENT
  Sex: Male

DRUGS (2)
  1. CLOZARIL [Suspect]
     Indication: SCHIZOPHRENIA
     Dosage: UNK
     Route: 048
     Dates: start: 20041016, end: 20101005
  2. CLOZARIL [Suspect]
     Dosage: UNK
     Route: 048
     Dates: start: 20101019

REACTIONS (6)
  - CIRCULATORY COLLAPSE [None]
  - DEATH [None]
  - HAEMODIALYSIS [None]
  - MALAISE [None]
  - PLATELET COUNT DECREASED [None]
  - SEDATION [None]
